FAERS Safety Report 8027811-8 (Version None)
Quarter: 2012Q1

REPORT INFORMATION
  Report Type: 
  Country: None (occurrence: None)
  Receive Date: 20120106
  Receipt Date: 20111228
  Transmission Date: 20120608
  Serious: Yes (Hospitalization)
  Sender: FDA-Public Use
  Company Number: US-AMGEN-USASP2011069579

PATIENT
  Age: 59 Year
  Sex: Male

DRUGS (1)
  1. SENSIPAR [Suspect]
     Indication: RENAL FAILURE CHRONIC
     Dosage: 90 MG, QD
     Dates: start: 20090101

REACTIONS (5)
  - MULTIMORBIDITY [None]
  - ENDOTRACHEAL INTUBATION [None]
  - HOSPITALISATION [None]
  - COMA [None]
  - GASTROSTOMY TUBE INSERTION [None]
